FAERS Safety Report 23232199 (Version 1)
Quarter: 2023Q4

REPORT INFORMATION
  Report Type: Spontaneous
  Country: NL (occurrence: NL)
  Receive Date: 20231127
  Receipt Date: 20231127
  Transmission Date: 20240109
  Serious: Yes (Other)
  Sender: FDA-Public Use
  Company Number: None

PATIENT
  Age: 16 Year
  Sex: Male
  Weight: 73.9 kg

DRUGS (10)
  1. PEMBROLIZUMAB [Suspect]
     Active Substance: PEMBROLIZUMAB
     Indication: Hodgkin^s disease
     Dosage: UNKNOWN
     Dates: start: 20230720
  2. VINCRISTINE [Concomitant]
     Active Substance: VINCRISTINE
     Dosage: UNKNOWN, AS A CURE
  3. CYCLOPHOSPHAMIDE [Concomitant]
     Active Substance: CYCLOPHOSPHAMIDE
     Dosage: UNKNOWN, AS A CURE
  4. GRANISETRON [Concomitant]
     Active Substance: GRANISETRON
     Dosage: TABLET, 2 MILLIGRAM
  5. SULFAMETHOXAZOLE\TRIMETHOPRIM [Concomitant]
     Active Substance: SULFAMETHOXAZOLE\TRIMETHOPRIM
     Dosage: TABLET, 160/800 MG (MILLIGRAM)
  6. POLYETHYLENE GLYCOLS [Concomitant]
     Active Substance: POLYETHYLENE GLYCOLS
     Dosage: POWDER FOR ORAL SOLUTION, 10 G (GRAMS)
  7. DACARBAZINE [Concomitant]
     Active Substance: DACARBAZINE
     Dosage: UNKNOWN, AS A CURE
  8. ETOPOSIDE [Concomitant]
     Active Substance: ETOPOSIDE
     Dosage: UNKNOWN, AS A CURE
  9. ESOMEPRAZOLE [Concomitant]
     Active Substance: ESOMEPRAZOLE
     Dosage: GASTRO-RESISTANT CAPSULE, 20 MG (MILLIGRAM)
  10. PREDNISONE [Concomitant]
     Active Substance: PREDNISONE
     Dosage: 25MG 3 TIMES DURING TREATMENT FOR 15 DAYS

REACTIONS (1)
  - Nephrolithiasis [Recovering/Resolving]
